FAERS Safety Report 5354146-4 (Version None)
Quarter: 2007Q2

REPORT INFORMATION
  Report Type: 
  Country: None (occurrence: None)
  Receive Date: 20070612
  Receipt Date: 20070529
  Transmission Date: 20071010
  Serious: Yes (Other)
  Sender: FDA-Public Use
  Company Number: US-ELI_LILLY_AND_COMPANY-US200705007179

PATIENT
  Age: 57 Year

DRUGS (9)
  1. HUMALOG [Suspect]
     Indication: DIABETES MELLITUS
  2. LEVEMIR [Concomitant]
  3. LANTUS [Concomitant]
  4. ZOLOFT [Concomitant]
     Dosage: 100 MG, UNK
  5. COREG [Concomitant]
     Dosage: 12.5 MG, UNK
  6. NEURONTIN [Concomitant]
  7. NITROSTAT [Concomitant]
  8. IMDUR [Concomitant]
  9. LASIX [Concomitant]
     Dosage: 40 MG, DAILY (1/D)

REACTIONS (2)
  - ALOPECIA [None]
  - BREAST CANCER [None]
